FAERS Safety Report 8547834-X (Version None)
Quarter: 2012Q3

REPORT INFORMATION
  Report Type: 
  Country: None (occurrence: None)
  Receive Date: 20120727
  Receipt Date: 20120301
  Transmission Date: 20120928
  Serious: Yes (Other)
  Sender: FDA-Public Use
  Company Number: US-ASTRAZENECA-2012SE14455

PATIENT
  Age: 55 Year
  Sex: Male
  Weight: 69.4 kg

DRUGS (3)
  1. BOTOX [Concomitant]
     Indication: TARDIVE DYSKINESIA
  2. SEROQUEL [Suspect]
     Indication: BIPOLAR DISORDER
     Route: 048
  3. UNSPECIFIED [Concomitant]

REACTIONS (12)
  - TARDIVE DYSKINESIA [None]
  - DIABETES MELLITUS [None]
  - BLOOD CHOLESTEROL INCREASED [None]
  - HUNGER [None]
  - CONFUSIONAL STATE [None]
  - DRY MOUTH [None]
  - HEPATIC ENZYME INCREASED [None]
  - BLOOD TRIGLYCERIDES INCREASED [None]
  - CARDIAC DISORDER [None]
  - THIRST [None]
  - ASTHENIA [None]
  - FATIGUE [None]
